FAERS Safety Report 15787108 (Version 1)
Quarter: 2018Q4

REPORT INFORMATION
  Report Type: Spontaneous
  Country: US (occurrence: US)
  Receive Date: 20181212
  Receipt Date: 20181212
  Transmission Date: 20190205
  Serious: Yes (Hospitalization)
  Sender: FDA-Public Use
  Company Number: None

PATIENT
  Age: 62 Year
  Weight: 72.57 kg

DRUGS (1)
  1. LISINOPRIL. [Suspect]
     Active Substance: LISINOPRIL
     Indication: HYPERTENSION
     Route: 048
     Dates: start: 20181017, end: 20181102

REACTIONS (7)
  - Angioedema [None]
  - Dyspnoea [None]
  - Chills [None]
  - Pyrexia [None]
  - Odynophagia [None]
  - Dysphagia [None]
  - Enlarged uvula [None]

NARRATIVE: CASE EVENT DATE: 20181101
